FAERS Safety Report 7330037-4 (Version None)
Quarter: 2011Q1

REPORT INFORMATION
  Report Type: 
  Country: None (occurrence: None)
  Receive Date: 20110303
  Receipt Date: 20100917
  Transmission Date: 20110831
  Serious: Yes (Hospitalization, Other)
  Sender: FDA-Public Use
  Company Number: US-BAYER-201029488NA

PATIENT
  Sex: Female
  Weight: 87.982 kg

DRUGS (13)
  1. OCELLA [Suspect]
     Indication: ACNE
     Dosage: UNK
  2. CONCERTA [Concomitant]
  3. ALLEGRA [Concomitant]
     Dosage: 180 MG, QD
  4. BIAXIN [Concomitant]
     Dosage: 500 MG, BID
  5. SINGULAIR [Concomitant]
     Dosage: 10 MG, QD
  6. ZYRTEC [Concomitant]
     Dosage: 10 MG, OM
  7. YAZ [Suspect]
     Indication: ACNE
     Dosage: UNK MG, UNK
  8. OMEPRAZOLE [Concomitant]
     Dosage: 20 MG, BID
  9. CIPRO [Concomitant]
     Dosage: 250 MG, BID
  10. YASMIN [Suspect]
     Indication: ACNE
     Dosage: UNK MG, UNK
  11. ADVAIR DISKUS 100/50 [Concomitant]
  12. FLONASE [Concomitant]
     Dosage: 50 ?G, UNK
  13. ZITHROMAX [Concomitant]
     Indication: SINUSITIS

REACTIONS (4)
  - GALLBLADDER CHOLESTEROLOSIS [None]
  - CHOLECYSTITIS CHRONIC [None]
  - ABDOMINAL PAIN UPPER [None]
  - CHOLELITHIASIS [None]
